FAERS Safety Report 4774442-9 (Version None)
Quarter: 2005Q3

REPORT INFORMATION
  Report Type: 
  Country: None (occurrence: None)
  Receive Date: 20050919
  Receipt Date: 20050919
  Transmission Date: 20060218
  Serious: Yes (Hospitalization)
  Sender: FDA-Public Use
  Company Number: None

PATIENT
  Age: 74 Year
  Sex: Male

DRUGS (1)
  1. CHLORPROMAZINE [Suspect]
     Indication: DEMENTIA
     Dosage: 25 MG IM ONCE
     Route: 030

REACTIONS (2)
  - DYSTONIA [None]
  - PNEUMONIA ASPIRATION [None]
